FAERS Safety Report 11877997 (Version 4)
Quarter: 2016Q2

REPORT INFORMATION
  Report Type: Spontaneous
  Country: US (occurrence: US)
  Receive Date: 20151230
  Receipt Date: 20160406
  Transmission Date: 20160815
  Serious: No
  Sender: FDA-Public Use
  Company Number: PHEH2015US026827

PATIENT
  Sex: Female
  Weight: 78.65 kg

DRUGS (42)
  1. NORCO [Concomitant]
     Active Substance: ACETAMINOPHEN\HYDROCODONE BITARTRATE
     Indication: PAIN
     Dosage: 1 DF, (EVERY 4 TO 6 HOURS)
     Route: 048
     Dates: start: 20150703
  2. LISINOPRIL. [Concomitant]
     Active Substance: LISINOPRIL
     Dosage: 1 DF, QD
     Route: 048
     Dates: start: 20151119
  3. PANTOPRAZOLE SODIUM. [Concomitant]
     Active Substance: PANTOPRAZOLE SODIUM
     Indication: PRODUCT USED FOR UNKNOWN INDICATION
     Dosage: 1 DF, QD
     Route: 048
     Dates: start: 20151119
  4. FASLODEX [Concomitant]
     Active Substance: FULVESTRANT
     Dosage: CYCLE 12
     Route: 030
     Dates: start: 20150924
  5. IMODIUM [Concomitant]
     Active Substance: LOPERAMIDE HYDROCHLORIDE
     Indication: DIARRHOEA
     Dosage: 2 DF, (4 TIMES DAILY AS NEEDED)
     Route: 065
     Dates: start: 20150511
  6. LETROZOLE. [Suspect]
     Active Substance: LETROZOLE
     Dosage: 1 DF, QD
     Route: 048
     Dates: start: 20151022
  7. LISINOPRIL. [Concomitant]
     Active Substance: LISINOPRIL
     Indication: PRODUCT USED FOR UNKNOWN INDICATION
     Dosage: 1 DF, QD
     Route: 048
     Dates: start: 20080327
  8. XGEVA [Concomitant]
     Active Substance: DENOSUMAB
     Indication: PRODUCT USED FOR UNKNOWN INDICATION
     Dosage: UNK
     Route: 058
     Dates: start: 20141120
  9. XGEVA [Concomitant]
     Active Substance: DENOSUMAB
     Dosage: 120 MG, UNK
     Route: 058
     Dates: start: 20141204
  10. FASLODEX [Concomitant]
     Active Substance: FULVESTRANT
     Indication: PRODUCT USED FOR UNKNOWN INDICATION
     Dosage: 10 ML, QMO AS 2 EQUALLY DIVIDED INJECTION ONE IN EACH BUTTOCK
     Route: 030
  11. PROAIR HFA [Concomitant]
     Active Substance: ALBUTEROL SULFATE
     Indication: PRODUCT USED FOR UNKNOWN INDICATION
     Dosage: 2 PUFF EVERY 4 TO 6 HRS AS NEEDED
     Route: 055
     Dates: start: 20151215
  12. ASPIRIN. [Concomitant]
     Active Substance: ASPIRIN
     Indication: PRODUCT USED FOR UNKNOWN INDICATION
     Dosage: 1 DF, QD
     Route: 048
     Dates: start: 20151215
  13. FAMOTIDINE. [Concomitant]
     Active Substance: FAMOTIDINE
     Indication: PRODUCT USED FOR UNKNOWN INDICATION
     Dosage: 1 DF, QD
     Route: 048
     Dates: start: 20140326
  14. AMLODIPINE [Concomitant]
     Active Substance: AMLODIPINE BESYLATE
     Indication: PRODUCT USED FOR UNKNOWN INDICATION
     Dosage: 1 DF, QD
     Route: 048
     Dates: start: 20151119
  15. TRIAMTERENE AND HYDROCHLOROTHIAZID [Concomitant]
     Active Substance: HYDROCHLOROTHIAZIDE\TRIAMTERENE
     Indication: PRODUCT USED FOR UNKNOWN INDICATION
     Dosage: 1 DF, QD
     Route: 048
     Dates: start: 20151119
  16. VOLTAREN//DICLOFENAC EPOLAMINE [Concomitant]
     Indication: ARTHRALGIA
     Dosage: UNK AS PRN
     Route: 065
     Dates: start: 20151009
  17. PLAVIX [Concomitant]
     Active Substance: CLOPIDOGREL BISULFATE
     Indication: PRODUCT USED FOR UNKNOWN INDICATION
     Dosage: 1 DF, QD
     Route: 048
     Dates: start: 20140509
  18. ACETAMINOPHEN\HYDROCODONE BITARTRATE [Concomitant]
     Active Substance: ACETAMINOPHEN\HYDROCODONE BITARTRATE
     Indication: PAIN
     Dosage: 0.5 TO 1 DF, EVERY 4 TO 6 HOURS AS NEEDED
     Route: 048
     Dates: start: 20151119
  19. XGEVA [Concomitant]
     Active Substance: DENOSUMAB
     Dosage: CYCLE 13
     Route: 058
     Dates: start: 20151022
  20. LETROZOLE. [Suspect]
     Active Substance: LETROZOLE
     Dosage: 1 DF, QD
     Route: 048
     Dates: start: 20151215
  21. LOPERAMIDE HCL [Concomitant]
     Active Substance: LOPERAMIDE HYDROCHLORIDE
     Indication: DIARRHOEA
     Dosage: 2 DF, 4 TIMES A DAY AT EACH LOOSE STOOLS
     Route: 048
  22. ISOSORBIDE MONONITRATE. [Concomitant]
     Active Substance: ISOSORBIDE MONONITRATE
     Indication: PRODUCT USED FOR UNKNOWN INDICATION
     Dosage: 1 DF, QD IN MORNING
     Route: 048
     Dates: start: 20151216
  23. FEMARA [Suspect]
     Active Substance: LETROZOLE
     Indication: BREAST CANCER METASTATIC
     Dosage: 2.5 MG, QD
     Route: 065
     Dates: start: 20151022, end: 20151102
  24. LETROZOLE. [Suspect]
     Active Substance: LETROZOLE
     Indication: BREAST CANCER METASTATIC
     Dosage: 1 DF, QD
     Route: 048
     Dates: start: 20151009
  25. VENTOLIN HFA [Concomitant]
     Active Substance: ALBUTEROL SULFATE
     Indication: PRODUCT USED FOR UNKNOWN INDICATION
     Dosage: 2 PUFF BEVERY 4 TO 6 HOURS AS NEEDED
     Route: 055
     Dates: start: 20150424
  26. POTASSIUM CHLORIDE. [Concomitant]
     Active Substance: POTASSIUM CHLORIDE
     Indication: PRODUCT USED FOR UNKNOWN INDICATION
     Dosage: 1 DF, BID WITH FOOD
     Route: 048
     Dates: start: 20150703
  27. CYCLOBENZAPRINE HCL [Concomitant]
     Active Substance: CYCLOBENZAPRINE HYDROCHLORIDE
     Indication: PAIN
     Dosage: 1 DF, TID AS NEED
     Route: 048
     Dates: start: 20151119
  28. METOPROLOL TARTRATE. [Concomitant]
     Active Substance: METOPROLOL TARTRATE
     Indication: PRODUCT USED FOR UNKNOWN INDICATION
     Dosage: 1 DF, BID
     Route: 048
     Dates: start: 20151119
  29. XGEVA [Concomitant]
     Active Substance: DENOSUMAB
     Dosage: 1.7 ML, QMO
     Route: 058
     Dates: start: 20151129
  30. XGEVA [Concomitant]
     Active Substance: DENOSUMAB
     Dosage: CYCLE 5
     Route: 058
     Dates: start: 20150313
  31. FASLODEX [Concomitant]
     Active Substance: FULVESTRANT
     Dosage: 500 MG, (CYCLE 2)
     Route: 030
     Dates: start: 20141218
  32. PRAVASTATIN [Concomitant]
     Active Substance: PRAVASTATIN\PRAVASTATIN SODIUM
     Indication: PRODUCT USED FOR UNKNOWN INDICATION
     Dosage: 1 DF, QD
     Route: 048
     Dates: start: 20140831
  33. FASLODEX [Concomitant]
     Active Substance: FULVESTRANT
     Dosage: CYCLE 6
     Route: 030
     Dates: start: 20150409
  34. FASLODEX [Concomitant]
     Active Substance: FULVESTRANT
     Dosage: CYCLE 13
     Route: 030
     Dates: start: 20151022
  35. CALCIUM + D3 [Concomitant]
     Active Substance: CALCIUM\CHOLECALCIFEROL
     Indication: PRODUCT USED FOR UNKNOWN INDICATION
     Dosage: 2 DF, QD
     Route: 065
     Dates: start: 20140903
  36. NORVASC [Concomitant]
     Active Substance: AMLODIPINE BESYLATE
     Indication: PRODUCT USED FOR UNKNOWN INDICATION
     Dosage: 1 DF, QD
     Route: 048
     Dates: start: 20080529
  37. NEXIUM [Concomitant]
     Active Substance: ESOMEPRAZOLE MAGNESIUM
     Indication: PRODUCT USED FOR UNKNOWN INDICATION
     Dosage: 1 DF, QD
     Route: 048
     Dates: start: 20080327
  38. NITROSTAT [Concomitant]
     Active Substance: NITROGLYCERIN
     Indication: PRODUCT USED FOR UNKNOWN INDICATION
     Dosage: 1 DF, PRN
     Route: 060
     Dates: start: 20100319
  39. LOVAZA [Concomitant]
     Active Substance: OMEGA-3-ACID ETHYL ESTERS
     Indication: PRODUCT USED FOR UNKNOWN INDICATION
     Dosage: 4 DF, QD
     Route: 048
     Dates: start: 20140326
  40. XGEVA [Concomitant]
     Active Substance: DENOSUMAB
     Dosage: CYCLE 6
     Route: 058
     Dates: start: 20150409
  41. XGEVA [Concomitant]
     Active Substance: DENOSUMAB
     Dosage: CYCLE 12
     Route: 058
     Dates: start: 20150924
  42. FASLODEX [Concomitant]
     Active Substance: FULVESTRANT
     Dosage: 500 MG, UNK
     Route: 030
     Dates: start: 20141120

REACTIONS (19)
  - Chest pain [Unknown]
  - Seborrhoeic keratosis [Unknown]
  - Dyspnoea [Unknown]
  - Chest discomfort [Unknown]
  - Choking sensation [Unknown]
  - Blood pressure systolic increased [Unknown]
  - Arthralgia [Unknown]
  - Neck pain [Unknown]
  - Headache [Unknown]
  - Cough [Unknown]
  - Oropharyngeal pain [Unknown]
  - Diarrhoea [Unknown]
  - Gastrooesophageal reflux disease [Recovering/Resolving]
  - Angina pectoris [Unknown]
  - Contusion [Unknown]
  - Hot flush [Unknown]
  - Aggression [Unknown]
  - Anxiety [Unknown]
  - Dizziness [Unknown]
